FAERS Safety Report 11191883 (Version 1)
Quarter: 2015Q2

REPORT INFORMATION
  Report Type: Report from Study
  Country: US (occurrence: US)
  Receive Date: 20150616
  Receipt Date: 20150616
  Transmission Date: 20150821
  Serious: Yes (Death, Hospitalization)
  Sender: FDA-Public Use
  Company Number: US-TEVA-569915USA

PATIENT
  Age: 70 Year
  Sex: Male

DRUGS (19)
  1. NORTRIPTYLINE [Concomitant]
     Active Substance: NORTRIPTYLINE
     Indication: NERVE INJURY
     Route: 048
     Dates: start: 2012
  2. SPIRIVA [Concomitant]
     Active Substance: TIOTROPIUM BROMIDE MONOHYDRATE
     Indication: DYSPNOEA
     Route: 055
     Dates: start: 2010
  3. FLUOROURACIL. [Suspect]
     Active Substance: FLUOROURACIL
     Indication: COLORECTAL CANCER METASTATIC
     Dosage: BOLUS
     Route: 042
     Dates: start: 20150506, end: 20150506
  4. ATROPINE SULFATE. [Concomitant]
     Active Substance: ATROPINE SULFATE
     Indication: PREMEDICATION
     Route: 042
     Dates: start: 20150306
  5. NUCYNTA [Concomitant]
     Active Substance: TAPENTADOL HYDROCHLORIDE
     Indication: BACK PAIN
     Dosage: 50 MILLIGRAM DAILY;
     Route: 048
     Dates: start: 201501
  6. BEVACIZUMAB [Suspect]
     Active Substance: BEVACIZUMAB
     Indication: COLORECTAL CANCER METASTATIC
     Dosage: DAY 1 OF EACH 14 DAY CYCLE
     Route: 042
  7. DEXAMETHASONE. [Concomitant]
     Active Substance: DEXAMETHASONE
     Indication: PREMEDICATION
     Route: 042
  8. PALONOSETRON [Concomitant]
     Active Substance: PALONOSETRON
     Indication: PREMEDICATION
     Route: 042
     Dates: start: 20150306
  9. ATORVASTATIN [Concomitant]
     Active Substance: ATORVASTATIN
     Indication: HYPERCHOLESTEROLAEMIA
     Dosage: 1 DOSAGE FORMS DAILY;
     Route: 048
     Dates: start: 2010
  10. MAGIC MOUTHWASH [Concomitant]
     Active Substance: DIPHENHYDRAMINE HYDROCHLORIDE\LIDOCAINE HYDROCHLORIDE\NYSTATIN
     Indication: MUCOSAL INFLAMMATION
     Route: 048
     Dates: start: 20150509
  11. FLUOROURACIL. [Suspect]
     Active Substance: FLUOROURACIL
     Dosage: DAY 1 OF EACH 14 DAY CYCLE
     Route: 042
     Dates: start: 20150506, end: 20150508
  12. AMIODARONE [Concomitant]
     Active Substance: AMIODARONE
     Indication: HEART RATE IRREGULAR
     Dosage: 1 DOSAGE FORMS DAILY;
     Route: 048
     Dates: start: 201405
  13. NEURONTIN [Concomitant]
     Active Substance: GABAPENTIN
     Indication: NERVE INJURY
     Route: 048
     Dates: start: 2012
  14. ABT-888 (VELPARIB) [Suspect]
     Active Substance: VELIPARIB
     Indication: COLORECTAL CANCER METASTATIC
     Dosage: DAY 2 THROUGH DAY 5 OF EACH 14 DAY CYCLE
     Route: 048
     Dates: start: 20150506, end: 20150506
  15. DIPHENOXYLATE W/ATROPINE SULFATE [Concomitant]
     Active Substance: ATROPINE SULFATE\DIPHENOXYLATE
     Indication: DIARRHOEA
     Route: 048
     Dates: start: 20150508
  16. IRINOTECAN [Suspect]
     Active Substance: IRINOTECAN
     Indication: COLORECTAL CANCER METASTATIC
     Dosage: DAY 1 OF EACH 14 DAY CYCLE
     Route: 042
     Dates: start: 20150506, end: 20150506
  17. LEUCOVORIN [Concomitant]
     Active Substance: LEUCOVORIN
     Indication: COLORECTAL CANCER METASTATIC
     Dosage: DAY 1 OF EACH 14 DAY CYCLE
     Route: 042
     Dates: start: 20150506, end: 20150506
  18. FLEXERIL [Concomitant]
     Active Substance: CYCLOBENZAPRINE HYDROCHLORIDE
     Indication: BACK PAIN
     Route: 048
     Dates: start: 2012
  19. IMODIUM [Concomitant]
     Active Substance: LOPERAMIDE HYDROCHLORIDE
     Route: 048
     Dates: start: 20150507

REACTIONS (3)
  - Cardiac arrest [Fatal]
  - Asthenia [Unknown]
  - Neutropenia [Unknown]

NARRATIVE: CASE EVENT DATE: 20150515
